FAERS Safety Report 4631337-9 (Version None)
Quarter: 2005Q2

REPORT INFORMATION
  Report Type: 
  Country: None (occurrence: None)
  Receive Date: 20050406
  Receipt Date: 20050318
  Transmission Date: 20051028
  Serious: Yes (Hospitalization, Other)
  Sender: FDA-Public Use
  Company Number: US_0412109481

PATIENT
  Age: 39 Year
  Sex: Female
  Weight: 57 kg

DRUGS (27)
  1. ZYPREXA [Suspect]
     Indication: BIPOLAR DISORDER
     Dosage: 10 MG AT BEDTIME
     Dates: start: 20030320, end: 20030801
  2. PROZAC [Suspect]
     Indication: HEADACHE
     Dosage: 40 MG IN THE MORNING
     Dates: start: 20020617
  3. ZYPREXA [Suspect]
     Indication: BIPOLAR DISORDER
     Dosage: 10 MG
     Dates: start: 20030315, end: 20030318
  4. LEXAPRO [Concomitant]
  5. TRAZODONE HCL [Concomitant]
  6. VISATRIL (HYDROXYZINE EMBONATE) [Concomitant]
  7. ATENOLOL [Concomitant]
  8. HYDROCET [Concomitant]
  9. ESGIC-PLUS [Concomitant]
  10. RANITIDINE [Concomitant]
  11. PHENERGAN [Concomitant]
  12. ALPRAZOLAM [Concomitant]
  13. REGULAR (METOCLOPRAMIDE HYDROCHLORIDE) [Concomitant]
  14. REMERON (MIRTHAZAPINE ORIFARM) [Concomitant]
  15. NEURONTIN (GABAPENTIN PFIZER) [Concomitant]
  16. NORCO [Concomitant]
  17. PHRENILIN FORTE [Concomitant]
  18. ULTRAM 9TRAMADOL HYDROCHLOFIDE) [Concomitant]
  19. LORTAB [Concomitant]
  20. QUININE SULFATE [Concomitant]
  21. LASIX [Concomitant]
  22. KLONOPIN [Concomitant]
  23. XANAX (ALPRAZOLAM DUM) [Concomitant]
  24. ZEBUTAL [Concomitant]
  25. DIPHENHYDRAMINE HCL [Concomitant]
  26. LORAZEPAM [Concomitant]
  27. FAMOTIDINE [Concomitant]

REACTIONS (38)
  - ABDOMINAL PAIN [None]
  - ACCIDENTAL OVERDOSE [None]
  - ANXIETY [None]
  - AORTIC VALVE INCOMPETENCE [None]
  - BLOOD ALBUMIN DECREASED [None]
  - BLOOD POTASSIUM DECREASED [None]
  - BLOOD TRIGLYCERIDES INCREASED [None]
  - BODY TEMPERATURE DECREASED [None]
  - CONDITION AGGRAVATED [None]
  - DECREASED APPETITE [None]
  - DEHYDRATION [None]
  - DEPRESSION [None]
  - DERMATITIS CONTACT [None]
  - HEPATIC ENZYME ABNORMAL [None]
  - HERPES SIMPLEX [None]
  - HYPEROSMOLAR STATE [None]
  - HYPERTENSION [None]
  - HYPOKALAEMIA [None]
  - HYPONATRAEMIA [None]
  - INTENTIONAL MISUSE [None]
  - IRRITABILITY [None]
  - JOINT SWELLING [None]
  - MALNUTRITION [None]
  - NAUSEA [None]
  - PANCREATITIS ACUTE [None]
  - PERIORBITAL OEDEMA [None]
  - PRURITUS [None]
  - PYODERMA [None]
  - SINUS BRADYCARDIA [None]
  - SKIN LACERATION [None]
  - SKIN LESION [None]
  - SUICIDE ATTEMPT [None]
  - SUPRAVENTRICULAR EXTRASYSTOLES [None]
  - SWOLLEN TONGUE [None]
  - VOMITING [None]
  - WEIGHT DECREASED [None]
  - WEIGHT INCREASED [None]
  - WOUND SECRETION [None]
